FAERS Safety Report 6595269-1 (Version None)
Quarter: 2010Q1

REPORT INFORMATION
  Report Type: 
  Country: None (occurrence: None)
  Receive Date: 20100212
  Receipt Date: 20100128
  Transmission Date: 20100710
  Serious: No
  Sender: FDA-Public Use
  Company Number: 20097665

PATIENT
  Sex: Male

DRUGS (1)
  1. LIORESAL [Suspect]
     Indication: MUSCLE SPASTICITY
     Dosage: 130.91 MCG, DAILY, INTRATHECAL
     Route: 037

REACTIONS (9)
  - CLONUS [None]
  - DRUG ADMINISTRATION ERROR [None]
  - DRUG WITHDRAWAL SYNDROME [None]
  - HYPERTONIA [None]
  - INFUSION SITE SWELLING [None]
  - MEDICAL DEVICE COMPLICATION [None]
  - RESTLESSNESS [None]
  - SLEEP DISORDER [None]
  - UNDERDOSE [None]
